FAERS Safety Report 4279184-4 (Version None)
Quarter: 2004Q1

REPORT INFORMATION
  Report Type: 
  Country: None (occurrence: None)
  Receive Date: 20040122
  Receipt Date: 20040113
  Transmission Date: 20041129
  Serious: Yes (Hospitalization)
  Sender: FDA-Public Use
  Company Number: 2004-01-0541

PATIENT
  Age: 73 Year
  Sex: Female

DRUGS (3)
  1. CLARITIN [Suspect]
     Indication: PRURITUS
     Dosage: 10 MG ORAL
     Route: 048
     Dates: start: 20030501, end: 20031226
  2. NORVASC [Suspect]
     Dosage: 2.5 MG ORAL
     Route: 048
     Dates: start: 20010101, end: 20031226
  3. FLUVASTATIN TABLETS [Suspect]
     Dosage: 40 MG ORAL
     Route: 048
     Dates: start: 20010101, end: 20031226

REACTIONS (3)
  - ALANINE AMINOTRANSFERASE INCREASED [None]
  - ASPARTATE AMINOTRANSFERASE INCREASED [None]
  - LABORATORY TEST ABNORMAL [None]
